FAERS Safety Report 7807450-1 (Version None)
Quarter: 2011Q4

REPORT INFORMATION
  Report Type: 
  Country: None (occurrence: None)
  Receive Date: 20111011
  Receipt Date: 20111009
  Transmission Date: 20120403
  Serious: Yes (Death)
  Sender: FDA-Public Use
  Company Number: PHHY2011CO89085

PATIENT
  Sex: Female

DRUGS (3)
  1. MENTIMOL [Concomitant]
  2. ZOLEDRONOC ACID [Suspect]
     Indication: OSTEOPOROSIS
     Dosage: 5 MG, UNK
     Route: 042
     Dates: start: 20110215
  3. MESTINON [Concomitant]
     Dosage: (1 TABLET PER DAY)

REACTIONS (1)
  - LUNG NEOPLASM MALIGNANT [None]
